FAERS Safety Report 18439839 (Version 1)
Quarter: 2020Q4

REPORT INFORMATION
  Report Type: Other
  Country: DE (occurrence: DE)
  Receive Date: 20201029
  Receipt Date: 20201029
  Transmission Date: 20210114
  Serious: No
  Sender: FDA-Public Use
  Company Number: DE-LUPIN PHARMACEUTICALS INC.-2020-04285

PATIENT
  Age: 30 Year
  Sex: Female
  Weight: 70 kg

DRUGS (1)
  1. DULOXETINE. [Suspect]
     Active Substance: DULOXETINE
     Indication: DEPRESSION
     Dosage: 60 MILLIGRAM, UNK
     Route: 048
     Dates: start: 201810, end: 202002

REACTIONS (7)
  - Loss of libido [Not Recovered/Not Resolved]
  - Epigastric discomfort [Unknown]
  - Vulvovaginal disorder [Not Recovered/Not Resolved]
  - Weight decreased [Unknown]
  - Gastrooesophageal reflux disease [Recovering/Resolving]
  - Female sexual dysfunction [Not Recovered/Not Resolved]
  - Oesophagitis [Unknown]

NARRATIVE: CASE EVENT DATE: 20181014
